FAERS Safety Report 17816983 (Version 1)
Quarter: 2020Q2

REPORT INFORMATION
  Report Type: Spontaneous
  Country: US (occurrence: US)
  Receive Date: 20200522
  Receipt Date: 20200522
  Transmission Date: 20200714
  Serious: No
  Sender: FDA-Public Use
  Company Number: None

PATIENT
  Age: 25 Year
  Sex: Female
  Weight: 81 kg

DRUGS (2)
  1. ETONOGESTREL/ETHINYL ESTRADIOL [Suspect]
     Active Substance: ETHINYL ESTRADIOL\ETONOGESTREL
     Indication: DYSMENORRHOEA
     Dosage: ?          QUANTITY:1 RING;OTHER FREQUENCY:INSERT FOR 3 WEEKS;?
     Route: 067
     Dates: start: 20200309
  2. ETONOGESTREL/ETHINYL ESTRADIOL [Suspect]
     Active Substance: ETHINYL ESTRADIOL\ETONOGESTREL
     Indication: CONTRACEPTION
     Dosage: ?          QUANTITY:1 RING;OTHER FREQUENCY:INSERT FOR 3 WEEKS;?
     Route: 067
     Dates: start: 20200309

REACTIONS (7)
  - Vulvovaginal discomfort [None]
  - Headache [None]
  - Acne [None]
  - Dysmenorrhoea [None]
  - Libido decreased [None]
  - Product substitution issue [None]
  - Mood swings [None]

NARRATIVE: CASE EVENT DATE: 20200316
